FAERS Safety Report 7464535-X (Version None)
Quarter: 2011Q1

REPORT INFORMATION
  Report Type: 
  Country: None (occurrence: None)
  Receive Date: 20110302
  Receipt Date: 20101220
  Transmission Date: 20110831
  Serious: Yes (Disabling)
  Sender: FDA-Public Use
  Company Number: 163-21880-10120541

PATIENT
  Age: 54 Year
  Sex: Female
  Weight: 69.8539 kg

DRUGS (4)
  1. NEXIUM [Concomitant]
  2. SUMATRIPTAN SUCCINATE (IMITREX) [Concomitant]
  3. REVLIMID [Suspect]
     Indication: MULTIPLE MYELOMA
     Dosage: 10 MG, 1 IN 1 D, PO
     Route: 048
     Dates: start: 20100601
  4. ASPIRIN [Concomitant]

REACTIONS (6)
  - HEADACHE [None]
  - NEOPLASM PROGRESSION [None]
  - ANXIETY [None]
  - DRUG INEFFECTIVE [None]
  - COUGH [None]
  - DEPRESSION [None]
